FAERS Safety Report 8005434-4 (Version None)
Quarter: 2011Q4

REPORT INFORMATION
  Report Type: 
  Country: None (occurrence: None)
  Receive Date: 20111223
  Receipt Date: 20111216
  Transmission Date: 20120403
  Serious: Yes (Hospitalization)
  Sender: FDA-Public Use
  Company Number: US-B.I. PHARMACEUTICALS,INC./RIDGEFIELD-2011-RU-00141BP

PATIENT
  Sex: Male
  Weight: 113.4 kg

DRUGS (3)
  1. BACTRIM [Concomitant]
     Indication: PROSTATITIS
     Dosage: 2 UNK
     Route: 048
     Dates: start: 20111118
  2. TRADJENTA [Suspect]
     Indication: TYPE 2 DIABETES MELLITUS
     Dates: start: 20111107, end: 20111120
  3. HYTRIN [Concomitant]
     Indication: UNEVALUABLE EVENT
     Dosage: 10 MG
     Route: 048
     Dates: end: 20111116

REACTIONS (2)
  - RENAL FAILURE ACUTE [None]
  - DEHYDRATION [None]
